FAERS Safety Report 6354634-8 (Version None)
Quarter: 2009Q3

REPORT INFORMATION
  Report Type: 
  Country: None (occurrence: None)
  Receive Date: 20090914
  Receipt Date: 20090902
  Transmission Date: 20100115
  Serious: Yes (Hospitalization, Other)
  Sender: FDA-Public Use
  Company Number: GB-ELI_LILLY_AND_COMPANY-GB200909001061

PATIENT
  Age: 25 Year
  Sex: Female

DRUGS (2)
  1. ZYPREXA [Suspect]
     Indication: POSTPARTUM DEPRESSION
     Dosage: 5 MG, DAILY (1/D)
     Route: 048
     Dates: start: 20090515, end: 20090519
  2. CITALOPRAM HYDROBROMIDE [Concomitant]
     Indication: POSTPARTUM DEPRESSION
     Dosage: 40 MG, DAILY (1/D)
     Route: 048

REACTIONS (4)
  - CONVULSION [None]
  - EYE ROLLING [None]
  - FOAMING AT MOUTH [None]
  - OFF LABEL USE [None]
